FAERS Safety Report 20855659 (Version 1)
Quarter: 2022Q2

REPORT INFORMATION
  Report Type: Spontaneous
  Country: US (occurrence: None)
  Receive Date: 20220520
  Receipt Date: 20220520
  Transmission Date: 20220721
  Serious: No
  Sender: FDA-Public Use
  Company Number: None

PATIENT
  Age: 56 Year
  Sex: Female

DRUGS (1)
  1. ENBREL [Suspect]
     Active Substance: ETANERCEPT
     Dosage: 50MG OTHER SUBCUTANEOUS?
     Route: 058

REACTIONS (3)
  - Product distribution issue [None]
  - Product storage error [None]
  - Product dose omission issue [None]

NARRATIVE: CASE EVENT DATE: 20220517
